FAERS Safety Report 18303611 (Version 1)
Quarter: 2020Q3

REPORT INFORMATION
  Report Type: Spontaneous
  Country: DE (occurrence: DE)
  Receive Date: 20200924
  Receipt Date: 20200924
  Transmission Date: 20201103
  Serious: Yes (Hospitalization)
  Sender: FDA-Public Use
  Company Number: DE-009507513-2009DEU005841

PATIENT
  Age: 71 Year
  Sex: Female
  Weight: 69 kg

DRUGS (8)
  1. COTRIM FORTE [Suspect]
     Active Substance: SULFAMETHOXAZOLE\TRIMETHOPRIM
     Dosage: 800/160 MG, PAUSE
  2. KALIUM VERLA [Concomitant]
     Active Substance: POTASSIUM CITRATE
     Dosage: NK MG, 1?1?1?0
  3. TORSEMIDE. [Concomitant]
     Active Substance: TORSEMIDE
     Dosage: 10 MG, 1?0?0?0
  4. FLUCONAZOLE. [Concomitant]
     Active Substance: FLUCONAZOLE
     Dosage: 100 MG, 1?0?0?0
  5. MIRTAZAPINE. [Suspect]
     Active Substance: MIRTAZAPINE
     Dosage: 15 MG, 0?0?1?0
  6. LEVOTHYROXINE SODIUM. [Concomitant]
     Active Substance: LEVOTHYROXINE SODIUM
     Dosage: 125 ?G, 1?0?0?0
  7. CHOLECALCIFEROL [Concomitant]
     Active Substance: CHOLECALCIFEROL
     Dosage: 20.000 I.U/ EVERY 2 WEEKS, TUESDAYS
  8. ACYCLOVIR. [Concomitant]
     Active Substance: ACYCLOVIR
     Dosage: 400 MG, 1?0?1?0

REACTIONS (3)
  - Fatigue [Unknown]
  - Localised infection [Unknown]
  - Liver function test abnormal [Unknown]
